FAERS Safety Report 25481088 (Version 1)
Quarter: 2025Q2

REPORT INFORMATION
  Report Type: Spontaneous
  Country: EG (occurrence: EG)
  Receive Date: 20250625
  Receipt Date: 20250625
  Transmission Date: 20250717
  Serious: Yes (Hospitalization, Other)
  Sender: Haleon PLC
  Company Number: EG-EPVC-300296893

PATIENT
  Age: 37 Year
  Sex: Male

DRUGS (7)
  1. ACETAMINOPHEN\ASPIRIN\CAFFEINE [Suspect]
     Active Substance: ACETAMINOPHEN\ASPIRIN\CAFFEINE
     Indication: Product used for unknown indication
     Route: 048
     Dates: start: 20250420
  2. DEXAMETHASONE [Suspect]
     Active Substance: DEXAMETHASONE
     Indication: Product used for unknown indication
     Dosage: AMPULE FOR 3 DAYS
     Dates: start: 20250420
  3. KETOROLAC TROMETHAMINE [Suspect]
     Active Substance: KETOROLAC TROMETHAMINE
     Indication: Product used for unknown indication
     Dosage: AMPULE, FOR 3 DAYS
     Dates: start: 20250420
  4. DICLOFENAC POTASSIUM\METHOCARBAMOL [Suspect]
     Active Substance: DICLOFENAC POTASSIUM\METHOCARBAMOL
     Indication: Product used for unknown indication
     Route: 048
     Dates: start: 20250420
  5. ETORICOXIB [Suspect]
     Active Substance: ETORICOXIB
     Indication: Product used for unknown indication
     Route: 048
     Dates: start: 20250420
  6. Uricol [Concomitant]
     Indication: Product used for unknown indication
  7. Unictam [Concomitant]
     Indication: Product used for unknown indication
     Dosage: FOR 3 DAYS
     Route: 042

REACTIONS (3)
  - Seizure [Not Recovered/Not Resolved]
  - Cerebral venous sinus thrombosis [Not Recovered/Not Resolved]
  - Headache [Not Recovered/Not Resolved]

NARRATIVE: CASE EVENT DATE: 20250426
